FAERS Safety Report 5565756-3 (Version None)
Quarter: 2007Q4

REPORT INFORMATION
  Report Type: 
  Country: None (occurrence: None)
  Receive Date: 20071218
  Receipt Date: 20071212
  Transmission Date: 20080405
  Serious: Yes (Hospitalization)
  Sender: FDA-Public Use
  Company Number: CH-MERCK-0712CHE00004

PATIENT
  Age: 64 Year
  Sex: Male
  Weight: 79 kg

DRUGS (9)
  1. JANUVIA [Suspect]
     Indication: TYPE 2 DIABETES MELLITUS
     Route: 048
     Dates: start: 20070901, end: 20071017
  2. JANUVIA [Suspect]
     Route: 048
     Dates: start: 20070101, end: 20070901
  3. JANUVIA [Suspect]
     Route: 048
     Dates: start: 20071018
  4. METFORMIN [Concomitant]
     Indication: TYPE 2 DIABETES MELLITUS
     Route: 048
     Dates: start: 20070901
  5. FOLIC ACID AND IRON (UNSPECIFIED) [Concomitant]
     Indication: POSTOPERATIVE CARE
     Route: 048
     Dates: start: 20071011
  6. ESOMEPRAZOLE MAGNESIUM [Concomitant]
     Indication: POSTOPERATIVE CARE
     Route: 048
     Dates: start: 20071011
  7. ACENOCOUMAROL [Concomitant]
     Indication: ATRIAL FIBRILLATION
     Route: 048
     Dates: start: 20071011
  8. ACETAMINOPHEN [Concomitant]
     Indication: PAIN
     Route: 048
     Dates: start: 20071011
  9. TOLTERODINE TARTRATE [Concomitant]
     Indication: INCONTINENCE
     Route: 048
     Dates: start: 20070901

REACTIONS (3)
  - FALL [None]
  - HUMERUS FRACTURE [None]
  - INTENTIONAL OVERDOSE [None]
